FAERS Safety Report 13261610 (Version 2)
Quarter: 2017Q1

REPORT INFORMATION
  Report Type: Spontaneous
  Country: FR (occurrence: FR)
  Receive Date: 20170222
  Receipt Date: 20170315
  Transmission Date: 20170428
  Serious: Yes (Other)
  Sender: FDA-Public Use
  Company Number: FR-ALLERGAN-1706544US

PATIENT
  Age: 32 Year
  Sex: Male

DRUGS (2)
  1. ESCITALOPRAM OXALATE - BP [Suspect]
     Active Substance: ESCITALOPRAM OXALATE
     Indication: DEPRESSION
     Dosage: 20 MG, QD
     Route: 048
     Dates: start: 201312, end: 201701
  2. XEROQUEL [Suspect]
     Active Substance: QUETIAPINE FUMARATE
     Indication: DEPRESSION
     Dosage: 150 MG, QD
     Route: 048
     Dates: start: 201408, end: 201701

REACTIONS (4)
  - Compulsive shopping [Recovered/Resolved]
  - Erection increased [Recovered/Resolved]
  - Hypersexuality [Recovered/Resolved]
  - Diffuse alopecia [Recovered/Resolved]

NARRATIVE: CASE EVENT DATE: 2015
